FAERS Safety Report 26108573 (Version 2)
Quarter: 2025Q4

REPORT INFORMATION
  Report Type: Spontaneous
  Country: EU (occurrence: EU)
  Receive Date: 20251201
  Receipt Date: 20251222
  Transmission Date: 20260118
  Serious: Yes (Other)
  Sender: OTSUKA
  Company Number: EU-MMM-Otsuka-L0KI2MYU

PATIENT
  Age: 27 Year
  Sex: Male

DRUGS (1)
  1. ABILIFY MAINTENA [Suspect]
     Active Substance: ARIPIPRAZOLE
     Indication: Schizophrenia
     Dosage: 400 MG, QM (ONCE A MONTH)
     Route: 065
     Dates: start: 20240603

REACTIONS (7)
  - Psychotic disorder [Unknown]
  - Panic disorder [Unknown]
  - Tension [Unknown]
  - Headache [Unknown]
  - Anxiety [Unknown]
  - Dizziness [Unknown]
  - Nausea [Unknown]

NARRATIVE: CASE EVENT DATE: 20250801
